FAERS Safety Report 10541431 (Version 1)
Quarter: 2014Q4

REPORT INFORMATION
  Report Type: Spontaneous
  Country: US (occurrence: None)
  Receive Date: 20141010
  Receipt Date: 20141010
  Transmission Date: 20150529
  Serious: No
  Sender: FDA-Public Use
  Company Number: 163-POMAL-14073190

PATIENT
  Age: 62 Year
  Sex: Female
  Weight: 79.8 kg

DRUGS (4)
  1. OXYCODONE/ACETAMINOPHEN (OXYCOCET) (UNKNOWN) [Concomitant]
  2. CALCIUM (CALCIUM) (UNKNOWN) [Concomitant]
  3. WARFARIN (WARFARIN) (UNKNOWN) [Concomitant]
  4. POMALYST [Suspect]
     Active Substance: POMALIDOMIDE
     Indication: PLASMA CELL MYELOMA
     Dosage: 4 MG, 21 IN 28 D, PO
     Route: 048
     Dates: start: 20140607

REACTIONS (1)
  - Dyspepsia [None]

NARRATIVE: CASE EVENT DATE: 2014
